FAERS Safety Report 8376520-4 (Version None)
Quarter: 2012Q2

REPORT INFORMATION
  Report Type: 
  Country: None (occurrence: None)
  Receive Date: 20120518
  Receipt Date: 20120510
  Transmission Date: 20120825
  Serious: Yes (Other)
  Sender: FDA-Public Use
  Company Number: ADR-2011-11279

PATIENT
  Age: 3 Year
  Sex: Female
  Weight: 12 kg

DRUGS (8)
  1. MONILAC SYRUP [Concomitant]
  2. TRICLORYL SYRUP [Concomitant]
  3. MUCODYNE [Concomitant]
  4. DIAPP [Concomitant]
  5. PHENOBARBITAL TAB [Concomitant]
  6. ARTANE [Concomitant]
  7. BACLOFEN [Suspect]
     Indication: CEREBRAL PALSY
     Dosage: 120 MCG/DAY,SEE B5
  8. GASMOTIN [Concomitant]

REACTIONS (6)
  - DEVICE BREAKAGE [None]
  - DEVICE DAMAGE [None]
  - TENSION [None]
  - FLUID RETENTION [None]
  - DRUG WITHDRAWAL SYNDROME [None]
  - MUSCLE TIGHTNESS [None]
